FAERS Safety Report 17995099 (Version 1)
Quarter: 2020Q3

REPORT INFORMATION
  Report Type: Spontaneous
  Country: FR (occurrence: FR)
  Receive Date: 20200708
  Receipt Date: 20200708
  Transmission Date: 20201103
  Serious: Yes (Other)
  Sender: FDA-Public Use
  Company Number: FR-TEVA-2020-FR-1792776

PATIENT
  Age: 44 Year
  Sex: Male

DRUGS (1)
  1. CHLORHYDRATE DE TRAMADOL [Suspect]
     Active Substance: TRAMADOL HYDROCHLORIDE
     Route: 048
     Dates: start: 2018

REACTIONS (2)
  - Intentional product misuse [Recovering/Resolving]
  - Behaviour disorder [Recovering/Resolving]

NARRATIVE: CASE EVENT DATE: 2020
